FAERS Safety Report 16731020 (Version 1)
Quarter: 2019Q4

REPORT INFORMATION
  Report Type: Spontaneous
  Country: US (occurrence: US)
  Receive Date: 20190822
  Receipt Date: 20190822
  Transmission Date: 20200122
  Serious: No
  Sender: FDA-Public Use
  Company Number: None

PATIENT
  Age: 50 Year
  Sex: Female
  Weight: 114.3 kg

DRUGS (12)
  1. FLAXSEED [Concomitant]
     Active Substance: FLAX SEED
  2. LORSARTAN [Concomitant]
     Active Substance: LOSARTAN
  3. BIOTIN [Concomitant]
     Active Substance: BIOTIN
  4. TUMERIC [Concomitant]
     Active Substance: HERBALS\TURMERIC
  5. OCREVUS [Suspect]
     Active Substance: OCRELIZUMAB
     Indication: MULTIPLE SCLEROSIS
     Dosage: ?          OTHER FREQUENCY:INFUSION 6MOS;?
     Route: 042
     Dates: start: 20190205
  6. MAGNESIUM [Concomitant]
     Active Substance: MAGNESIUM
  7. CALCIUM [Concomitant]
     Active Substance: CALCIUM
  8. BACLOFEN. [Concomitant]
     Active Substance: BACLOFEN
  9. MULTI VITAMIN [Concomitant]
     Active Substance: VITAMINS
  10. SELENIUM [Concomitant]
     Active Substance: SELENIUM
  11. VITAMIN D3 [Concomitant]
     Active Substance: CHOLECALCIFEROL
  12. AMINOPYRIDINE [Concomitant]
     Active Substance: DALFAMPRIDINE

REACTIONS (1)
  - Alopecia [None]

NARRATIVE: CASE EVENT DATE: 20190205
